FAERS Safety Report 17749789 (Version 5)
Quarter: 2020Q3

REPORT INFORMATION
  Report Type: Report from Study
  Country: CO (occurrence: CO)
  Receive Date: 20200506
  Receipt Date: 20200702
  Transmission Date: 20201102
  Serious: Yes (Other)
  Sender: FDA-Public Use
  Company Number: CO-ASTELLAS-2020US015650

PATIENT
  Age: 59 Year
  Sex: Male

DRUGS (12)
  1. BICARBONATE [Concomitant]
     Active Substance: SODIUM BICARBONATE
     Indication: AZOTAEMIA
     Dosage: 1 TABLE SPOON, ONCE DAILY (STARTED 1 YEAR AGO)
     Route: 048
  2. CARVEDILOL. [Concomitant]
     Active Substance: CARVEDILOL
     Indication: BLOOD PRESSURE MANAGEMENT
     Dosage: 12.5 (6.25 X2) UNKNOWN UNITS, EVERY 12 HOURS (STARTED 1.5 YEARS AGO)
     Route: 048
  3. SPIRONOLACTONE. [Concomitant]
     Active Substance: SPIRONOLACTONE
     Indication: BLOOD PRESSURE MANAGEMENT
     Dosage: 25 MG, ONCE DAILY (STARTED 1.5 YEARS AGO)
     Route: 048
  4. MYCOPHENOLATE [Concomitant]
     Active Substance: MYCOPHENOLIC ACID
     Indication: IMMUNOSUPPRESSANT DRUG THERAPY
     Dosage: 1 MG, ONCE DAILY (STARTED 18 YEARS AGO)
     Route: 048
  5. TACROLIMUS. [Suspect]
     Active Substance: TACROLIMUS
     Dosage: 3 MG, ONCE DAILY (3 CAPSULES OF 1 MG)
     Route: 048
     Dates: start: 202003
  6. TACROLIMUS. [Suspect]
     Active Substance: TACROLIMUS
     Indication: RENAL TRANSPLANT
     Route: 048
     Dates: start: 20171012
  7. ATORVASTATIN [Concomitant]
     Active Substance: ATORVASTATIN
     Indication: BLOOD CHOLESTEROL
     Dosage: 1 MG, ONCE DAILY (STARTED 5 YEARS AGO)
     Route: 048
  8. AMLODIPINE [Concomitant]
     Active Substance: AMLODIPINE BESYLATE
     Indication: BLOOD PRESSURE MANAGEMENT
     Dosage: 5 MG, EVERY 12 HOURS (STARTED 1 YEAR AGO)
     Route: 048
  9. ALOPURINOL [Concomitant]
     Active Substance: ALLOPURINOL
     Indication: BLOOD URIC ACID
     Dosage: 100 MG, ONCE DAILY  (STARTED 5 YEARS AGO)
     Route: 048
  10. FUROSEMIDE. [Suspect]
     Active Substance: FUROSEMIDE
     Indication: PERIPHERAL SWELLING
     Dosage: UNK UNK, UNKNOWN FREQ.
     Route: 065
  11. DEFLAZACORT [Concomitant]
     Active Substance: DEFLAZACORT
     Indication: IMMUNOSUPPRESSANT DRUG THERAPY
     Dosage: 625 MG, ONCE DAILY (STARTED 15 YEARS AGO)
     Route: 048
  12. FUROSEMIDE. [Suspect]
     Active Substance: FUROSEMIDE
     Indication: SWELLING

REACTIONS (6)
  - Weight decreased [Recovering/Resolving]
  - Blood creatinine increased [Recovered/Resolved]
  - Blood urea abnormal [Recovered/Resolved]
  - Swelling [Recovering/Resolving]
  - Peripheral swelling [Recovered/Resolved]
  - Haemoglobin decreased [Recovering/Resolving]

NARRATIVE: CASE EVENT DATE: 2018
